FAERS Safety Report 9392905 (Version 1)
Quarter: 2013Q3

REPORT INFORMATION
  Report Type: Spontaneous
  Country: US (occurrence: US)
  Receive Date: 20130710
  Receipt Date: 20130710
  Transmission Date: 20140515
  Serious: No
  Sender: FDA-Public Use
  Company Number: US-PFIZER INC-2013200641

PATIENT
  Age: 65 Year
  Sex: Female
  Weight: 72.56 kg

DRUGS (19)
  1. XELJANZ [Suspect]
     Dosage: 5 MG, 2X/DAY
     Route: 048
  2. FOLIC ACID [Concomitant]
     Dosage: UNK
  3. METHOTREXATE [Concomitant]
     Dosage: 200/8 ML
  4. PLAQUENIL [Concomitant]
     Dosage: 200 MG, UNK
  5. SKELAXIN [Concomitant]
     Dosage: 800 MG, UNK
  6. PERCOCET [Concomitant]
     Dosage: 10-650 MG
  7. RECLAST [Concomitant]
     Dosage: 5/100 ML
  8. DETROL LA [Concomitant]
     Dosage: 4 MG, UNK
  9. METOLAZONE [Concomitant]
     Dosage: 2.5 MG, UNK
  10. LASIX [Concomitant]
     Dosage: 40 MG, UNK
  11. NEXIUM [Concomitant]
     Dosage: 20 MG, UNK
  12. RESTASIS [Concomitant]
     Dosage: 0.05 %, UNK
  13. LISINOPRIL [Concomitant]
     Dosage: 10 MG, UNK
  14. CARVEDILOL [Concomitant]
     Dosage: 25 MG, UNK
  15. DILANTIN [Concomitant]
     Dosage: 30 MG, UNK
  16. ASPIRIN ADLT [Concomitant]
     Dosage: 81 MG, UNK
  17. CHROMIUM PIC [Concomitant]
     Dosage: 1667 UG, UNK
  18. VITAMIN D [Concomitant]
     Dosage: 1000 UNIT
  19. VITAMIN C [Concomitant]
     Dosage: UNK

REACTIONS (3)
  - Rash [Unknown]
  - Nasal disorder [Unknown]
  - Depression [Unknown]
